FAERS Safety Report 6562442-8 (Version None)
Quarter: 2010Q1

REPORT INFORMATION
  Report Type: 
  Country: None (occurrence: None)
  Receive Date: 20100130
  Receipt Date: 20091110
  Transmission Date: 20100710
  Serious: Yes (Hospitalization, Other)
  Sender: FDA-Public Use
  Company Number: US-ABBOTT-09P-163-0608022-00

PATIENT
  Sex: Female

DRUGS (4)
  1. HUMIRA [Suspect]
     Indication: CROHN'S DISEASE
     Route: 058
  2. PREDNISONE [Concomitant]
     Indication: DRUG USE FOR UNKNOWN INDICATION
  3. VALIUM [Concomitant]
     Indication: DRUG USE FOR UNKNOWN INDICATION
  4. IMURAN [Concomitant]
     Indication: DRUG USE FOR UNKNOWN INDICATION

REACTIONS (12)
  - ARTHRALGIA [None]
  - BLOOD THYROID STIMULATING HORMONE DECREASED [None]
  - CROHN'S DISEASE [None]
  - DEPRESSION [None]
  - GRIP STRENGTH DECREASED [None]
  - HYPERAESTHESIA [None]
  - HYPOAESTHESIA [None]
  - MALAISE [None]
  - OEDEMA PERIPHERAL [None]
  - PAIN [None]
  - PARAESTHESIA [None]
  - THROMBOCYTOPENIA [None]
